FAERS Safety Report 5117023-X (Version None)
Quarter: 2006Q3

REPORT INFORMATION
  Report Type: 
  Country: None (occurrence: None)
  Receive Date: 20060925
  Receipt Date: 20060925
  Transmission Date: 20061208
  Serious: Yes (Hospitalization)
  Sender: FDA-Public Use
  Company Number: 230147

PATIENT
  Age: 44 Year
  Sex: Female

DRUGS (12)
  1. AVASTIN [Suspect]
     Indication: COLORECTAL CANCER METASTATIC
     Dosage: 175 MG, Q2W, INTRAVENOUS
     Route: 042
     Dates: start: 20051104, end: 20060615
  2. IRINOTECAN HCL [Suspect]
     Indication: COLORECTAL CANCER METASTATIC
     Dosage: 170 MG, Q2W, INTRAVENOUS
     Route: 042
     Dates: start: 20051104, end: 20060113
  3. FLUOROURACIL [Suspect]
     Indication: COLORECTAL CANCER METASTATIC
     Dosage: 378 MG, Q2W, INTRAVENOUS
     Route: 042
     Dates: start: 20051104, end: 20060310
  4. LEUCOVORIN (LEUCOVORIN CALCIUM) [Suspect]
     Indication: COLORECTAL CANCER METASTATIC
     Dosage: 190 MG, Q2W, INTRAVENOUS
     Route: 042
     Dates: start: 20051104, end: 20060310
  5. FERROUS FUMARATE [Concomitant]
  6. LIVER EXTRACT [Concomitant]
  7. VITAMIN B (VITAMIN B NOS) [Concomitant]
  8. TRANSMIN (TRANEXAMIC ACID) [Concomitant]
  9. IMOVANE (ZOPICLONE) [Concomitant]
  10. LEVOFLOXACIN [Concomitant]
  11. PEPCIDINE (FAMOTIDINE) [Concomitant]
  12. PIRITON (CHLORPHENIRAMINE MALEATE) [Concomitant]

REACTIONS (3)
  - ANAEMIA [None]
  - MENORRHAGIA [None]
  - PYREXIA [None]
